FAERS Safety Report 8002780 (Version 5)
Quarter: 2013Q4

REPORT INFORMATION
  Report Type: Report from Study
  Country: JP (occurrence: JP)
  Receive Date: 20110622
  Receipt Date: 20131113
  Transmission Date: 20140711
  Serious: Yes (Life-Threatening, Hospitalization, Other)
  Sender: FDA-Public Use
  Company Number: PHHY2011JP08809

PATIENT
  Age: 28 Year
  Sex: Female

DRUGS (54)
  1. LEPONEX / CLOZARIL [Suspect]
     Indication: SCHIZOPHRENIA
     Dosage: 12.5 MG
     Route: 048
     Dates: start: 20101201, end: 20101201
  2. LEPONEX / CLOZARIL [Suspect]
     Dosage: 25 MG
     Route: 048
     Dates: start: 20101202, end: 20101204
  3. LEPONEX / CLOZARIL [Suspect]
     Dosage: 50 MG
     Route: 048
     Dates: start: 20101205, end: 20101207
  4. LEPONEX / CLOZARIL [Suspect]
     Dosage: 75 MG
     Route: 048
     Dates: start: 20101208, end: 20101209
  5. LEPONEX / CLOZARIL [Suspect]
     Dosage: 100 MG
     Route: 048
     Dates: start: 20101210, end: 20101211
  6. LEPONEX / CLOZARIL [Suspect]
     Dosage: 125 MG
     Route: 048
     Dates: start: 20101212, end: 20101214
  7. LEPONEX / CLOZARIL [Suspect]
     Dosage: 150 MG
     Route: 048
     Dates: start: 20101215, end: 20101217
  8. LEPONEX / CLOZARIL [Suspect]
     Dosage: 175 MG
     Route: 048
     Dates: start: 20101218, end: 20101220
  9. LEPONEX / CLOZARIL [Suspect]
     Dosage: 200 MG
     Route: 048
     Dates: start: 20101221, end: 20101221
  10. LEPONEX / CLOZARIL [Suspect]
     Dosage: 225 MG
     Route: 048
     Dates: start: 20101222, end: 20101223
  11. LEPONEX / CLOZARIL [Suspect]
     Dosage: 250 MG
     Route: 048
     Dates: start: 20101224, end: 20101225
  12. LEPONEX / CLOZARIL [Suspect]
     Dosage: 300 MG
     Route: 048
     Dates: start: 20101226, end: 20101228
  13. LEPONEX / CLOZARIL [Suspect]
     Dosage: 350 MG
     Route: 048
     Dates: start: 20101229, end: 20101231
  14. LEPONEX / CLOZARIL [Suspect]
     Dosage: 375 MG
     Route: 048
     Dates: start: 20110101, end: 20110104
  15. LEPONEX / CLOZARIL [Suspect]
     Dosage: 400 MG
     Route: 048
     Dates: start: 20110105, end: 20110106
  16. LEPONEX / CLOZARIL [Suspect]
     Dosage: 425 MG
     Route: 048
     Dates: start: 20110107, end: 20110108
  17. LEPONEX / CLOZARIL [Suspect]
     Dosage: 450 MG
     Route: 048
     Dates: start: 20110109, end: 20110111
  18. LEPONEX / CLOZARIL [Suspect]
     Dosage: 475 MG
     Route: 048
     Dates: start: 20110112, end: 20110114
  19. LEPONEX / CLOZARIL [Suspect]
     Dosage: 500 MG
     Route: 048
     Dates: start: 20110115, end: 20110118
  20. LEPONEX / CLOZARIL [Suspect]
     Dosage: 550 MG
     Route: 048
     Dates: start: 20110119, end: 20110125
  21. LEPONEX / CLOZARIL [Suspect]
     Dosage: 600 MG
     Route: 048
     Dates: start: 20110126, end: 20110202
  22. LEPONEX / CLOZARIL [Suspect]
     Dosage: 500 MG
     Route: 048
     Dates: start: 20110203, end: 20110510
  23. LEPONEX / CLOZARIL [Suspect]
     Dosage: 475 MG
     Route: 048
     Dates: start: 20110511, end: 20110513
  24. LEPONEX / CLOZARIL [Suspect]
     Dosage: 450 MG
     Route: 048
     Dates: start: 20110514, end: 20110607
  25. LEPONEX / CLOZARIL [Suspect]
     Dosage: 500 MG, QD, DAILY
     Route: 048
     Dates: start: 20110608, end: 20110609
  26. VALPROATE SODIUM [Concomitant]
     Dosage: 400 MG, DAILY
  27. HIRNAMIN [Concomitant]
     Dosage: 150 MG, UNK
     Route: 048
     Dates: start: 20101201
  28. HIRNAMIN [Concomitant]
     Dosage: 125 MG, UNK
     Route: 048
  29. HIRNAMIN [Concomitant]
     Dosage: 100 MG, UNK
     Route: 048
  30. HIRNAMIN [Concomitant]
     Dosage: 50 MG, UNK
     Route: 048
  31. HIRNAMIN [Concomitant]
     Dosage: 25 MG, UNK
     Route: 048
     Dates: end: 20101228
  32. RISPERDAL [Concomitant]
     Dosage: 12 MG, UNK
     Route: 048
     Dates: start: 20101201
  33. RISPERDAL [Concomitant]
     Dosage: 10 MG, UNK
     Route: 048
  34. RISPERDAL [Concomitant]
     Dosage: 6 MG, UNK
  35. RISPERDAL [Concomitant]
     Dosage: 4 MG, UNK
     Route: 048
  36. RISPERDAL [Concomitant]
     Dosage: 3 MG, UNK
     Route: 048
  37. RISPERDAL [Concomitant]
     Dosage: 2 MG, UNK
     Route: 048
     Dates: end: 20101228
  38. AKINETON                                /AUS/ [Concomitant]
     Dosage: 6 MG, UNK
     Route: 048
     Dates: start: 20101201
  39. AKINETON                                /AUS/ [Concomitant]
     Dosage: 5 MG, UNK
     Route: 048
  40. AKINETON                                /AUS/ [Concomitant]
     Dosage: 4 MG, UNK
     Route: 048
  41. AKINETON                                /AUS/ [Concomitant]
     Dosage: 2 MG, UNK
     Route: 048
     Dates: end: 20110609
  42. WYPAX [Concomitant]
     Indication: SCHIZOPHRENIA
     Route: 048
     Dates: start: 20101229, end: 20110301
  43. MAGMITT [Concomitant]
     Dosage: 3000 MG, UNK
     Route: 048
  44. MAGMITT [Concomitant]
     Dosage: 3000 MG, UNK
     Route: 048
  45. MAGMITT [Concomitant]
     Dosage: 3000 MG, UNK
     Route: 048
     Dates: end: 20110602
  46. AMOBAN [Concomitant]
     Indication: SCHIZOPHRENIA
     Dosage: 7.5 MG, UNK
     Route: 048
     Dates: start: 20101201
  47. LAXOBERON [Concomitant]
     Route: 048
     Dates: start: 20101201, end: 20110301
  48. SLOWHEIM [Concomitant]
     Indication: SCHIZOPHRENIA
     Dosage: 7.5 MG, UNK
     Dates: start: 20110302
  49. SLOWHEIM [Concomitant]
     Dosage: 7.5 MG, UNK
     Route: 048
     Dates: end: 20110609
  50. TASMOLIN [Concomitant]
     Dosage: 3 MG, UNK
     Dates: start: 20110302, end: 20110601
  51. TASMOLIN [Concomitant]
     Dosage: 2.5 MG, UNK
     Route: 048
  52. TASMOLIN [Concomitant]
     Dosage: 2 MG, UNK
     Route: 048
     Dates: end: 20110601
  53. CEFTRIAXONE SODIUM [Concomitant]
     Dosage: 2000 MG, UNK
     Dates: start: 20110609, end: 20110609
  54. PANTOL [Concomitant]
     Dosage: 100 MG, UNK
     Dates: start: 20110609, end: 20110609

REACTIONS (17)
  - Leukopenia [Unknown]
  - Neutropenia [Unknown]
  - White blood cell count decreased [Recovered/Resolved]
  - Appendicitis perforated [Recovering/Resolving]
  - C-reactive protein increased [Recovered/Resolved]
  - Neutrophil count increased [Recovered/Resolved]
  - White blood cell count increased [Recovered/Resolved]
  - Inflammation [Unknown]
  - Abdominal rigidity [Unknown]
  - Vomiting [Unknown]
  - Hyperthermia [Unknown]
  - Peritonitis [Recovering/Resolving]
  - Grand mal convulsion [Recovered/Resolved]
  - Fall [Unknown]
  - Orthostatic hypertension [Unknown]
  - Dizziness [Unknown]
  - Tachycardia [Recovered/Resolved]
